FAERS Safety Report 6373155-X (Version None)
Quarter: 2009Q3

REPORT INFORMATION
  Report Type: 
  Country: None (occurrence: None)
  Receive Date: 20090924
  Receipt Date: 20090127
  Transmission Date: 20100115
  Serious: No
  Sender: FDA-Public Use
  Company Number: US-ASTRAZENECA-2009UW02489

PATIENT
  Age: 735 Month
  Sex: Female
  Weight: 99.8 kg

DRUGS (13)
  1. SEROQUEL [Suspect]
     Indication: DEPRESSION
     Route: 048
     Dates: start: 20050127
  2. CRESTOR [Concomitant]
     Route: 048
  3. LEXAPRO [Concomitant]
  4. TOPROL-XL [Concomitant]
  5. ZESTRIL [Concomitant]
  6. ALDACTONE [Concomitant]
  7. PLAVIX [Concomitant]
  8. ASPIRIN [Concomitant]
  9. METFORMIN HCL [Concomitant]
  10. MYSOLINE [Concomitant]
  11. CLONAZEPAM [Concomitant]
  12. WELLBUTRIN [Concomitant]
  13. HORMONES [Concomitant]

REACTIONS (3)
  - DIABETES MELLITUS [None]
  - SINUS DISORDER [None]
  - TYMPANIC MEMBRANE PERFORATION [None]
